FAERS Safety Report 24408068 (Version 1)
Quarter: 2024Q4

REPORT INFORMATION
  Report Type: Spontaneous
  Country: US (occurrence: US)
  Receive Date: 20241007
  Receipt Date: 20241007
  Transmission Date: 20250115
  Serious: Yes (Other)
  Sender: AMGEN
  Company Number: US-AMGEN-USASP2024195628

PATIENT
  Age: 24 Year
  Sex: Male

DRUGS (2)
  1. PREDNISONE [Suspect]
     Active Substance: PREDNISONE
     Indication: Mediastinitis
     Dosage: UNK
     Route: 065
  2. APIXABAN [Concomitant]
     Active Substance: APIXABAN
     Indication: Mediastinitis
     Dosage: UNK
     Route: 065

REACTIONS (5)
  - Mediastinitis [Unknown]
  - Vascular stent stenosis [Unknown]
  - Mediastinal fibrosis [Unknown]
  - Drug effective for unapproved indication [Unknown]
  - Off label use [Unknown]
